FAERS Safety Report 20991004 (Version 1)
Quarter: 2022Q2

REPORT INFORMATION
  Report Type: Spontaneous
  Country: CA (occurrence: None)
  Receive Date: 20220622
  Receipt Date: 20220622
  Transmission Date: 20220721
  Serious: Yes (Other)
  Sender: FDA-Public Use
  Company Number: CA-ROCHE-3117785

PATIENT
  Age: 63 Year
  Sex: Female
  Weight: 63 kg

DRUGS (15)
  1. RITUXIMAB [Suspect]
     Active Substance: RITUXIMAB
     Indication: Rheumatoid arthritis
     Route: 042
  2. CANDESARTAN CILEXETIL [Suspect]
     Active Substance: CANDESARTAN CILEXETIL
     Indication: Blood pressure measurement
     Route: 048
  3. AMLODIPINE BESYLATE [Concomitant]
     Active Substance: AMLODIPINE BESYLATE
  4. ACETAMINOPHEN [Concomitant]
     Active Substance: ACETAMINOPHEN
  5. ASPIRIN [Concomitant]
     Active Substance: ASPIRIN
  6. METHYLPREDNISOLONE SODIUM SUCCINATE [Concomitant]
     Active Substance: METHYLPREDNISOLONE SODIUM SUCCINATE
  7. ATORVASTATIN CALCIUM [Concomitant]
     Active Substance: ATORVASTATIN CALCIUM
  8. CHLORTHALIDONE [Concomitant]
     Active Substance: CHLORTHALIDONE
  9. FOLIC ACID [Concomitant]
     Active Substance: FOLIC ACID
  10. PANTOPRAZOLE SODIUM [Concomitant]
     Active Substance: PANTOPRAZOLE SODIUM
  11. BISOPROLOL [Concomitant]
     Active Substance: BISOPROLOL
  12. DIPHENHYDRAMINE [Concomitant]
     Active Substance: DIPHENHYDRAMINE
  13. SYNTHROID [Concomitant]
     Active Substance: LEVOTHYROXINE SODIUM
  14. LEFLUNOMIDE [Concomitant]
     Active Substance: LEFLUNOMIDE
  15. PREDNISONE [Concomitant]
     Active Substance: PREDNISONE

REACTIONS (11)
  - Hypertension [Unknown]
  - Blood pressure fluctuation [Unknown]
  - Weight increased [Unknown]
  - Chronic sinusitis [Unknown]
  - Blood pressure systolic increased [Unknown]
  - Cough [Unknown]
  - Blood pressure increased [Unknown]
  - Heart rate decreased [Unknown]
  - Blood pressure systolic abnormal [Unknown]
  - Iron deficiency anaemia [Unknown]
  - Weight decreased [Unknown]
